FAERS Safety Report 12748105 (Version 2)
Quarter: 2017Q3

REPORT INFORMATION
  Report Type: Spontaneous
  Country: US (occurrence: US)
  Receive Date: 20160915
  Receipt Date: 20170914
  Transmission Date: 20171127
  Serious: No
  Sender: FDA-Public Use
  Company Number: US-ASTELLAS-2016US005991

PATIENT
  Sex: Male

DRUGS (2)
  1. XTANDI [Suspect]
     Active Substance: ENZALUTAMIDE
     Route: 048
     Dates: start: 20160128
  2. XTANDI [Suspect]
     Active Substance: ENZALUTAMIDE
     Indication: PROSTATE CANCER
     Route: 048

REACTIONS (8)
  - Abdominal pain upper [Unknown]
  - Abdominal discomfort [Unknown]
  - Dizziness [Unknown]
  - Cardiac disorder [Unknown]
  - Pain in extremity [Unknown]
  - Eructation [Unknown]
  - Nausea [Unknown]
  - Asthenia [Unknown]
